FAERS Safety Report 16904357 (Version 1)
Quarter: 2020Q3

REPORT INFORMATION
  Report Type: Spontaneous
  Country: DE (occurrence: DE)
  Receive Date: 20191010
  Receipt Date: 20191010
  Transmission Date: 20201104
  Serious: Yes (Other)
  Sender: FDA-Public Use
  Company Number: DE-TEVA-2019-DE-1121276

PATIENT
  Sex: Male
  Weight: 105 kg

DRUGS (10)
  1. RITUXIMAB. [Suspect]
     Active Substance: RITUXIMAB
     Indication: DIFFUSE LARGE B-CELL LYMPHOMA
     Dosage: UNK, CYCLIC (1ST LINE, R?CHOEP, 2R  AND HD?MTX 8 CYCLES)
     Route: 065
     Dates: start: 20171214, end: 20180324
  2. DEXAMETHASONE. [Suspect]
     Active Substance: DEXAMETHASONE
     Indication: DIFFUSE LARGE B-CELL LYMPHOMA
     Dosage: UNK, CYCLIC (1ST LINE, R?CHOEP, 2R, HD?MTX 8 CYCLES)
     Route: 065
     Dates: start: 20171214, end: 20180324
  3. AZATHIOPRINE. [Suspect]
     Active Substance: AZATHIOPRINE
     Indication: DIFFUSE LARGE B-CELL LYMPHOMA
     Dosage: UNK, CYCLIC (1ST LINE, R?CHOEP, 2R, HD?MTX 8 CYCLES)
     Route: 065
     Dates: start: 20171214, end: 20180324
  4. POLATUZUMAB VEDOTIN. [Suspect]
     Active Substance: POLATUZUMAB VEDOTIN
     Indication: DIFFUSE LARGE B-CELL LYMPHOMA
     Dosage: UNK, CYCLIC (1ST LINE, R?CHOEP, 2R, HD?MTX 8 CYCLES)
     Route: 065
     Dates: start: 20171214, end: 20180324
  5. CYCLOPHOSPHAMIDE. [Suspect]
     Active Substance: CYCLOPHOSPHAMIDE
     Indication: DIFFUSE LARGE B-CELL LYMPHOMA
     Dosage: UNK, CYCLIC (1ST LINE, R?CHOEP AND 2R AND HD?MTX 8 CYCLES)
     Route: 065
     Dates: start: 20171214, end: 20180324
  6. RITUXIMAB. [Suspect]
     Active Substance: RITUXIMAB
     Dosage: UNK UNK, CYCLIC (2ND LINE, 2 R?DHAP)
     Route: 065
     Dates: start: 20190102, end: 20190124
  7. BENDAMUSTINE HYDROCHLORIDE. [Suspect]
     Active Substance: BENDAMUSTINE HYDROCHLORIDE
     Indication: DIFFUSE LARGE B-CELL LYMPHOMA
     Dosage: UNK UNK, CYCLIC (1ST LINE, R?CHOEP + 2R +HD?MTX 8 CYCLES)
     Route: 042
     Dates: start: 20171214, end: 20180324
  8. METHOTREXATE. [Suspect]
     Active Substance: METHOTREXATE
     Indication: DIFFUSE LARGE B-CELL LYMPHOMA
     Dosage: UNK UNK, CYCLIC  (1ST LINE, R?CHOEP,  2R  AND HD?MTX 8 CYCLES)
     Route: 065
     Dates: start: 20171214, end: 20180324
  9. THALIDOMIDE [Suspect]
     Active Substance: THALIDOMIDE
     Indication: DIFFUSE LARGE B-CELL LYMPHOMA
     Dosage: UNK, CYCLIC (1ST LINE, R?CHOEP,  2R, HD?MTX 8 CYCLES)
     Route: 065
     Dates: start: 20171214, end: 20180324
  10. RITUXIMAB. [Suspect]
     Active Substance: RITUXIMAB
     Dosage: UNK, CYCLIC  (2ND LINE, R?BEAM)
     Route: 065
     Dates: start: 20190221

REACTIONS (3)
  - Activated partial thromboplastin time prolonged [Unknown]
  - Product use in unapproved indication [Unknown]
  - Thrombocytopenia [Unknown]
